FAERS Safety Report 5175472-8 (Version None)
Quarter: 2006Q4

REPORT INFORMATION
  Report Type: 
  Country: None (occurrence: None)
  Receive Date: 20061212
  Receipt Date: 20061212
  Transmission Date: 20070319
  Serious: Yes (Life-Threatening, Hospitalization, Disabling)
  Sender: FDA-Public Use
  Company Number: None

PATIENT
  Sex: Female
  Weight: 60.782 kg

DRUGS (1)
  1. NUVARING [Suspect]
     Indication: OESTROGEN DEFICIENCY
     Dates: start: 20040701, end: 20061121

REACTIONS (1)
  - PULMONARY EMBOLISM [None]
